FAERS Safety Report 25511005 (Version 1)
Quarter: 2025Q3

REPORT INFORMATION
  Report Type: Spontaneous
  Country: US (occurrence: US)
  Receive Date: 20250703
  Receipt Date: 20250703
  Transmission Date: 20251020
  Serious: No
  Sender: RADIUS PHARM
  Company Number: US-RADIUS HEALTH INC.-2024US003783

PATIENT
  Age: 72 Year
  Sex: Female

DRUGS (2)
  1. TYMLOS [Suspect]
     Active Substance: ABALOPARATIDE
     Indication: Senile osteoporosis
     Route: 058
     Dates: start: 20240501
  2. TYMLOS [Suspect]
     Active Substance: ABALOPARATIDE
     Route: 058
     Dates: start: 20240501

REACTIONS (17)
  - Dizziness [Not Recovered/Not Resolved]
  - Fatigue [Not Recovered/Not Resolved]
  - Pain [Not Recovered/Not Resolved]
  - Gastrointestinal disorder [Not Recovered/Not Resolved]
  - Pharyngeal swelling [Not Recovered/Not Resolved]
  - Dysphagia [Not Recovered/Not Resolved]
  - Regurgitation [Not Recovered/Not Resolved]
  - Intentional product misuse [Not Recovered/Not Resolved]
  - Abdominal pain upper [Not Recovered/Not Resolved]
  - Alopecia [Not Recovered/Not Resolved]
  - Myalgia [Not Recovered/Not Resolved]
  - Memory impairment [Not Recovered/Not Resolved]
  - Brain fog [Not Recovered/Not Resolved]
  - Joint instability [Not Recovered/Not Resolved]
  - Palpitations [Not Recovered/Not Resolved]
  - Sensation of foreign body [Unknown]
  - Headache [Unknown]

NARRATIVE: CASE EVENT DATE: 20240501
